FAERS Safety Report 10210742 (Version 1)
Quarter: 2014Q2

REPORT INFORMATION
  Report Type: Report from Study
  Country: BR (occurrence: BR)
  Receive Date: 20140602
  Receipt Date: 20140602
  Transmission Date: 20141212
  Serious: Yes (Other)
  Sender: FDA-Public Use
  Company Number: PHHY2014BR063329

PATIENT
  Age: 46 Year
  Sex: Male

DRUGS (15)
  1. EVEROLIMUS [Suspect]
     Indication: RENAL TRANSPLANT
     Dosage: 1.5 MG, BID
  2. EVEROLIMUS [Suspect]
     Dosage: 2MG,BID FROM POST OPERATIVE DAY 24
  3. EVEROLIMUS [Suspect]
     Dosage: 2MG,FROM POST OPERATIVE DAY 24
  4. TACROLIMUS [Suspect]
     Indication: RENAL TRANSPLANT
     Dosage: 8 MG, BID (1 MG PER KG )
  5. TACROLIMUS [Suspect]
     Dosage: 3 MG, BID POST OPERATIVE DAY 9
  6. TACROLIMUS [Suspect]
     Dosage: 5 MG BID, POST OPERATIVE DAY 24
  7. TACROLIMUS [Suspect]
     Dosage: 4 MG, BID, POST OPERATIVE 2 MONTHS, 11 DAYS
  8. TACROLIMUS [Suspect]
     Dosage: 5 MG (3 MG PLUS 2 MG), POST OPERATIVE 3 MONTHS AND 2 DAYS
  9. TACROLIMUS [Suspect]
     Dosage: 1 MG, POST OPERATIVE 5 MONTHS
  10. PREDNISONE [Suspect]
     Indication: RENAL TRANSPLANT
     Dosage: 30 MG, UNK
  11. PREDNISONE [Suspect]
     Dosage: 20 MG, POST OPERATIVE 2 MONTHS AND 11 DAYS
  12. PREDNISONE [Suspect]
     Dosage: 15 MG, POST OPERATIVE 3 MONTHS AND 2 DAYS
  13. PREDNISONE [Suspect]
     Dosage: 5 MG, POST OPERATIVE 5 MONTHS
  14. METHYLPREDNISOLONE [Concomitant]
     Dosage: 1 G, UNK
  15. THYMOGLOBULIN [Concomitant]
     Dosage: 1.5 MG/KG, UNK (PER DAY) (TOTAL OF 4 DOSES EVERY OTHER DAY)

REACTIONS (15)
  - Nephropathy toxic [Unknown]
  - Renal tubular atrophy [Unknown]
  - Renal tubular necrosis [Unknown]
  - Arteriovenous fistula site complication [Unknown]
  - Venous stenosis [Unknown]
  - Oedema peripheral [Unknown]
  - Post procedural haematoma [Unknown]
  - Complications of transplanted kidney [Unknown]
  - Cytomegalovirus infection [Unknown]
  - Diabetes mellitus [Unknown]
  - Dyslipidaemia [Unknown]
  - Leukocyturia [Unknown]
  - Haematuria [Unknown]
  - Proteinuria [Unknown]
  - Immunosuppressant drug level increased [Unknown]
